FAERS Safety Report 9762023 (Version 1)
Quarter: 2013Q4

REPORT INFORMATION
  Report Type: Spontaneous
  Country: US (occurrence: US)
  Receive Date: 20131216
  Receipt Date: 20131216
  Transmission Date: 20140711
  Serious: Yes (Other)
  Sender: FDA-Public Use
  Company Number: US-FRI-1000052291

PATIENT
  Age: 54 Year
  Sex: Male

DRUGS (3)
  1. LEXAPRO [Suspect]
     Indication: DEPRESSION
     Dosage: 10 MG
     Route: 048
  2. LEXAPRO [Suspect]
     Dosage: 5 MG
     Route: 048
  3. LEXAPRO [Suspect]
     Dosage: 2.5 MG
     Route: 048
     Dates: end: 201212

REACTIONS (8)
  - Suicidal ideation [Recovered/Resolved]
  - Impaired driving ability [Recovered/Resolved]
  - Obsessive-compulsive disorder [Recovered/Resolved]
  - Inappropriate affect [Recovered/Resolved]
  - Weight increased [Recovered/Resolved]
  - Food craving [Recovered/Resolved]
  - Paraesthesia [Recovered/Resolved]
  - Asthenia [Recovered/Resolved]
